FAERS Safety Report 25971695 (Version 1)
Quarter: 2025Q4

REPORT INFORMATION
  Report Type: Spontaneous
  Country: GB (occurrence: None)
  Receive Date: 20251029
  Receipt Date: 20251029
  Transmission Date: 20260117
  Serious: Yes (Hospitalization)
  Sender: ENDO
  Company Number: GB-ENDO USA, INC.-2025-001887

PATIENT
  Age: 52 Year
  Sex: Male

DRUGS (9)
  1. AVEED [Suspect]
     Active Substance: TESTOSTERONE UNDECANOATE
     Indication: Product used for unknown indication
     Dosage: UNK UNKNOWN, UNKNOWN (INTO RIGHT BUTTOCK)
  2. CABOTEGRAVIR [Suspect]
     Active Substance: CABOTEGRAVIR
     Indication: Antiretroviral therapy
     Dosage: 600 MILLIGRAM, UNKNOWN (IN LEFT VENTROGLUTEAL REGION)
  3. CABOTEGRAVIR [Suspect]
     Active Substance: CABOTEGRAVIR
     Dosage: 30 MILLIGRAM, DAILY
  4. RILPIVIRINE [Suspect]
     Active Substance: RILPIVIRINE
     Indication: Antiretroviral therapy
     Dosage: 900 MILLIGRAM, UNKNOWN (IN RIGHT VENTROGLUTEAL REGION)
  5. RILPIVIRINE [Suspect]
     Active Substance: RILPIVIRINE
     Dosage: 25 MILLIGRAM, DAILY
  6. TENOFOVIR DISOPROXIL FUMARATE [Concomitant]
     Active Substance: TENOFOVIR DISOPROXIL FUMARATE
     Indication: Antiretroviral therapy
     Dosage: 245 MILLIGRAM, UNKNOWN
  7. EMTRICITABINE [Concomitant]
     Active Substance: EMTRICITABINE
     Indication: Antiretroviral therapy
     Dosage: 200 MILLIGRAM, UNKNOWN
  8. COBICISTAT [Concomitant]
     Active Substance: COBICISTAT
     Indication: Antiretroviral therapy
     Dosage: 150 MILLIGRAM, UNKNOWN
  9. ELVITEGRAVIR [Concomitant]
     Active Substance: ELVITEGRAVIR
     Indication: Antiretroviral therapy
     Dosage: 150 MILLIGRAM, UNKNOWN

REACTIONS (8)
  - Injection site swelling [Recovering/Resolving]
  - Injection site haemorrhage [Recovering/Resolving]
  - Soft tissue inflammation [Recovering/Resolving]
  - Injection site nodule [Recovering/Resolving]
  - Injection site necrosis [Recovering/Resolving]
  - Injection site pain [Recovering/Resolving]
  - Drug interaction [Unknown]
  - Intentional product misuse [Unknown]
